FAERS Safety Report 14844481 (Version 1)
Quarter: 2018Q2

REPORT INFORMATION
  Report Type: Report from Study
  Country: US (occurrence: US)
  Receive Date: 20180503
  Receipt Date: 20180503
  Transmission Date: 20180711
  Serious: Yes (Other)
  Sender: FDA-Public Use
  Company Number: US-BRISTOL-MYERS SQUIBB COMPANY-BMS-2017-068466

PATIENT
  Age: 62 Year
  Sex: Female
  Weight: 72.56 kg

DRUGS (1)
  1. ABATACEPT [Suspect]
     Active Substance: ABATACEPT
     Indication: RHEUMATOID ARTHRITIS
     Dosage: 125 MG, QWK
     Route: 058
     Dates: start: 2016

REACTIONS (5)
  - Back disorder [Recovering/Resolving]
  - Muscle spasms [Unknown]
  - Drug dose omission [Unknown]
  - Intervertebral disc protrusion [Unknown]
  - Nerve compression [Unknown]

NARRATIVE: CASE EVENT DATE: 20170725
